FAERS Safety Report 10343431 (Version 2)
Quarter: 2014Q3

REPORT INFORMATION
  Report Type: Spontaneous
  Country: GR (occurrence: GR)
  Receive Date: 20140725
  Receipt Date: 20140725
  Transmission Date: 20150326
  Serious: Yes (Other)
  Sender: FDA-Public Use
  Company Number: GR-ABBVIE-14P-066-1197028-00

PATIENT
  Age: 9 Year
  Sex: Female

DRUGS (3)
  1. SODIUM VALPROATE [Suspect]
     Active Substance: VALPROATE SODIUM
  2. SODIUM VALPROATE [Suspect]
     Active Substance: VALPROATE SODIUM
     Indication: EPILEPSY
  3. SODIUM VALPROATE [Suspect]
     Active Substance: VALPROATE SODIUM

REACTIONS (2)
  - Deafness neurosensory [Recovering/Resolving]
  - Toxicity to various agents [Recovering/Resolving]
